FAERS Safety Report 15752425 (Version 1)
Quarter: 2018Q4

REPORT INFORMATION
  Report Type: Spontaneous
  Country: US (occurrence: US)
  Receive Date: 20181221
  Receipt Date: 20181221
  Transmission Date: 20190205
  Serious: Yes (Hospitalization)
  Sender: FDA-Public Use
  Company Number: US-LANNETT COMPANY, INC.-US-2018LAN004634

PATIENT
  Age: 23 Year
  Sex: Male

DRUGS (4)
  1. FENTANYL. [Suspect]
     Active Substance: FENTANYL
     Indication: PRODUCT USED FOR UNKNOWN INDICATION
     Dosage: UNK
  2. METHAMPHETAMINE                    /00069101/ [Suspect]
     Active Substance: METHAMPHETAMINE
     Indication: PRODUCT USED FOR UNKNOWN INDICATION
     Dosage: UNK
  3. BUPRENORPHINE AND NALOXONE [Suspect]
     Active Substance: BUPRENORPHINE\NALOXONE
     Indication: OVERDOSE
     Dosage: 1-2 MG; REPEATED DOSES
     Route: 042
  4. BUPRENORPHINE AND NALOXONE [Suspect]
     Active Substance: BUPRENORPHINE\NALOXONE
     Dosage: 19 MG; AFTER 1 HOUR (HIGH DOSE)
     Route: 042

REACTIONS (4)
  - Cardiopulmonary failure [Recovered/Resolved]
  - Pulmonary oedema [Recovered/Resolved]
  - Cardiogenic shock [Recovered/Resolved]
  - Overdose [Recovered/Resolved]
